FAERS Safety Report 6804124-0 (Version None)
Quarter: 2010Q2

REPORT INFORMATION
  Report Type: 
  Country: None (occurrence: None)
  Receive Date: 20100628
  Receipt Date: 20070323
  Transmission Date: 20101027
  Serious: No
  Sender: FDA-Public Use
  Company Number: US-PFIZER INC-2006088545

PATIENT
  Age: 25 Year
  Sex: Male

DRUGS (3)
  1. GEODON [Suspect]
     Indication: THINKING ABNORMAL
     Route: 065
     Dates: start: 20060101
  2. GEODON [Suspect]
     Indication: DISTURBANCE IN ATTENTION
  3. CYMBALTA [Suspect]
     Indication: ILL-DEFINED DISORDER
     Route: 065

REACTIONS (5)
  - EUPHORIC MOOD [None]
  - HEADACHE [None]
  - RESTLESSNESS [None]
  - TEMPOROMANDIBULAR JOINT SYNDROME [None]
  - TOOTHACHE [None]
